FAERS Safety Report 16409006 (Version 1)
Quarter: 2019Q2

REPORT INFORMATION
  Report Type: Spontaneous
  Country: US (occurrence: US)
  Receive Date: 20190605
  Receipt Date: 20190605
  Transmission Date: 20190711
  Serious: Yes (Other)
  Sender: FDA-Public Use
  Company Number: None

PATIENT

DRUGS (1)
  1. NEOSTIGMINE SYRINGE [Suspect]
     Active Substance: NEOSTIGMINE

REACTIONS (2)
  - Product contamination microbial [None]
  - Product quality issue [None]

NARRATIVE: CASE EVENT DATE: 20190605
